FAERS Safety Report 8853295 (Version 2)
Quarter: 2012Q4

REPORT INFORMATION
  Report Type: 
  Country: JP (occurrence: JP)
  Receive Date: 20121022
  Receipt Date: 20121224
  Transmission Date: 20130627
  Serious: Yes (Other)
  Sender: FDA-Public Use
  Company Number: JP-009507513-1206USA04421

PATIENT
  Age: 44 Year
  Sex: Female

DRUGS (6)
  1. FOSAPREPITANT DIMEGLUMINE [Suspect]
     Indication: PROPHYLAXIS OF NAUSEA AND VOMITING
     Dosage: 150 mg, Once
     Route: 041
     Dates: start: 20120417, end: 20120417
  2. ALOXI [Concomitant]
     Dates: start: 20120417, end: 20120417
  3. DECADRON [Concomitant]
     Dates: start: 20120417, end: 20120417
  4. FARMORUBICIN [Concomitant]
     Indication: BREAST CANCER
     Dates: start: 20120417, end: 20120417
  5. ENDOXAN [Concomitant]
     Indication: BREAST CANCER
     Dates: start: 20120417, end: 20120417
  6. SODIUM CHLORIDE [Concomitant]
     Dosage: UNK
     Route: 041
     Dates: start: 20120417, end: 20120417

REACTIONS (2)
  - Injection site phlebitis [Recovered/Resolved]
  - Injection site pain [Recovered/Resolved]
